FAERS Safety Report 4877726-9 (Version None)
Quarter: 2006Q1

REPORT INFORMATION
  Report Type: 
  Country: None (occurrence: None)
  Receive Date: 20060109
  Receipt Date: 20051228
  Transmission Date: 20060701
  Serious: Yes (Life-Threatening, Other)
  Sender: FDA-Public Use
  Company Number: 2006000083

PATIENT

DRUGS (2)
  1. VIAGRA [Suspect]
     Indication: ILL-DEFINED DISORDER
  2. NITROGLYCERIN [Suspect]
     Indication: CHEST PAIN
     Dosage: INTRAVENOUS
     Route: 042
     Dates: start: 20051201

REACTIONS (3)
  - CARDIAC ARREST [None]
  - CHEST PAIN [None]
  - DRUG INTERACTION [None]
